FAERS Safety Report 22537758 (Version 2)
Quarter: 2023Q2

REPORT INFORMATION
  Report Type: Spontaneous
  Country: US (occurrence: US)
  Receive Date: 20230608
  Receipt Date: 20230622
  Transmission Date: 20230722
  Serious: Yes (Hospitalization)
  Sender: FDA-Public Use
  Company Number: US-TEVA-2023-US-2893216

PATIENT
  Age: 16 Year
  Sex: Female

DRUGS (2)
  1. GUANFACINE [Suspect]
     Active Substance: GUANFACINE
     Indication: Product used for unknown indication
     Dosage: INGESTED 90-120 PILLS
     Route: 048
  2. ARIPIPRAZOLE [Suspect]
     Active Substance: ARIPIPRAZOLE
     Indication: Product used for unknown indication
     Dosage: INGESTED FIVE PILLS
     Route: 048

REACTIONS (10)
  - Posterior reversible encephalopathy syndrome [Recovered/Resolved]
  - Somnolence [Recovered/Resolved]
  - Apnoea [Recovered/Resolved]
  - Hypertensive emergency [Recovered/Resolved]
  - Generalised tonic-clonic seizure [Recovered/Resolved]
  - Bradycardia [Recovered/Resolved]
  - Hypotension [Recovered/Resolved]
  - Toxicity to various agents [Unknown]
  - Intentional overdose [Unknown]
  - Intentional product misuse [Unknown]
